FAERS Safety Report 9242894 (Version 1)
Quarter: 2013Q2

REPORT INFORMATION
  Report Type: Spontaneous
  Country: US (occurrence: US)
  Receive Date: 20130419
  Receipt Date: 20130419
  Transmission Date: 20140414
  Serious: Yes (Hospitalization, Other)
  Sender: FDA-Public Use
  Company Number: US-SANOFI-AVENTIS-2013SA040591

PATIENT
  Age: 71 Year
  Sex: Female

DRUGS (10)
  1. PLAVIX [Suspect]
  2. EXENATIDE [Suspect]
     Indication: TYPE 2 DIABETES MELLITUS
     Dates: start: 2013
  3. METFORMIN HYDROCHLORIDE [Suspect]
  4. METFORMIN HYDROCHLORIDE [Suspect]
  5. GLYBURIDE [Suspect]
  6. GLYBURIDE [Suspect]
  7. ATORVASTATIN [Concomitant]
  8. RAMIPRIL [Concomitant]
  9. MAGNESIUM OXIDE [Concomitant]
  10. METOPROLOL [Concomitant]

REACTIONS (5)
  - Foot operation [Unknown]
  - Foreign body aspiration [Unknown]
  - Blood glucose fluctuation [Unknown]
  - Gastric haemorrhage [Recovered/Resolved]
  - Haematemesis [Unknown]
